FAERS Safety Report 24272449 (Version 2)
Quarter: 2024Q3

REPORT INFORMATION
  Report Type: Spontaneous
  Country: JP (occurrence: JP)
  Receive Date: 20240902
  Receipt Date: 20240913
  Transmission Date: 20241016
  Serious: Yes (Other)
  Sender: TAKEDA
  Company Number: JP-TAKEDA-2024TJP011039

PATIENT
  Age: 3 Decade
  Sex: Female

DRUGS (1)
  1. INTUNIV [Suspect]
     Active Substance: GUANFACINE HYDROCHLORIDE
     Indication: Attention deficit hyperactivity disorder
     Dosage: 4 MILLIGRAM, QD
     Route: 048
     Dates: start: 20240101, end: 20240628

REACTIONS (2)
  - Abortion induced [Recovered/Resolved]
  - Pregnancy [Unknown]

NARRATIVE: CASE EVENT DATE: 20240601
